FAERS Safety Report 12611186 (Version 1)
Quarter: 2016Q3

REPORT INFORMATION
  Report Type: Spontaneous
  Country: AU (occurrence: AU)
  Receive Date: 20160801
  Receipt Date: 20160801
  Transmission Date: 20161109
  Serious: Yes (Death, Hospitalization)
  Sender: FDA-Public Use
  Company Number: AU-JUBILANT CADISTA PHARMACEUTICALS-2016JUB00279

PATIENT
  Age: 72 Year
  Sex: Male

DRUGS (1)
  1. PREDNISONE. [Suspect]
     Active Substance: PREDNISONE
     Indication: ASTHMA
     Route: 048

REACTIONS (8)
  - Pulmonary haemorrhage [Fatal]
  - Strongyloidiasis [Fatal]
  - Septic shock [Fatal]
  - Acute kidney injury [Fatal]
  - Small intestinal obstruction [Fatal]
  - Acute respiratory distress syndrome [Fatal]
  - Ascites [Fatal]
  - Lower respiratory tract infection [Fatal]
